FAERS Safety Report 25809044 (Version 1)
Quarter: 2025Q3

REPORT INFORMATION
  Report Type: Spontaneous
  Country: US (occurrence: None)
  Receive Date: 20250916
  Receipt Date: 20250916
  Transmission Date: 20251020
  Serious: Yes (Hospitalization)
  Sender: FDA-CTU
  Company Number: None

PATIENT
  Age: 77 Year
  Sex: Female

DRUGS (10)
  1. COLLAGENASE SANTYL [Suspect]
     Active Substance: COLLAGENASE CLOSTRIDIUM HISTOLYTICUM
     Indication: Wound
     Dosage: OTHER STRENGTH : 250 UNIT/G ;?FREQUENCY : DAILY;?
     Route: 061
     Dates: start: 20250823
  2. aspirin 81mg EC tablet [Concomitant]
  3. ATORVASTATIN [Concomitant]
     Active Substance: ATORVASTATIN
  4. bisacodyl 5mg EC tablet [Concomitant]
  5. GABAPENTIN [Concomitant]
     Active Substance: GABAPENTIN
  6. MIRTAZAPINE [Concomitant]
     Active Substance: MIRTAZAPINE
  7. pantoprazole 20mg tablet [Concomitant]
  8. PEG 3350 NF powder [Concomitant]
  9. Prosource liquid no carb [Concomitant]
  10. risperidone 0.25mg tablet [Concomitant]

REACTIONS (1)
  - Wound [None]

NARRATIVE: CASE EVENT DATE: 20250910
